FAERS Safety Report 8812216 (Version 1)
Quarter: 2012Q4

REPORT INFORMATION
  Report Type: 
  Country: US (occurrence: US)
  Receive Date: 20120927
  Receipt Date: 20120927
  Transmission Date: 20130627
  Serious: No
  Sender: FDA-Public Use
  Company Number: US-PFIZER INC-2012238606

PATIENT
  Age: 4 Year
  Sex: Female
  Weight: 19.96 kg

DRUGS (1)
  1. JUNIOR STRENGTH ADVIL [Suspect]
     Indication: NASOPHARYNGITIS
     Dosage: one and a half tablet of 100 mg
     Route: 048

REACTIONS (2)
  - Throat irritation [Recovered/Resolved]
  - Oral discomfort [Recovered/Resolved]
